FAERS Safety Report 15569645 (Version 3)
Quarter: 2019Q3

REPORT INFORMATION
  Report Type: Spontaneous
  Country: CN (occurrence: CN)
  Receive Date: 20181031
  Receipt Date: 20190726
  Transmission Date: 20191004
  Serious: Yes (Hospitalization)
  Sender: FDA-Public Use
  Company Number: CN-ROCHE-2208108

PATIENT
  Age: 61 Year
  Sex: Female
  Weight: 48 kg

DRUGS (10)
  1. HERCEPTIN [Suspect]
     Active Substance: TRASTUZUMAB
     Dosage: POWDER INJECTION
     Route: 041
     Dates: start: 20190617, end: 20190617
  2. PACLITAXEL. [Suspect]
     Active Substance: PACLITAXEL
     Indication: TARGETED CANCER THERAPY
     Route: 041
     Dates: start: 20180831, end: 20180831
  3. SODIUM CHLORIDE. [Concomitant]
     Active Substance: SODIUM CHLORIDE
     Dosage: SOLVENT FOR TRASTUZUMAB
     Route: 041
     Dates: start: 20181002, end: 20181002
  4. SODIUM CHLORIDE. [Concomitant]
     Active Substance: SODIUM CHLORIDE
     Dosage: SOLVENT FOR PACLITAXEL INJECTION
     Route: 041
     Dates: start: 20180831, end: 20180831
  5. CARBOPLATIN. [Suspect]
     Active Substance: CARBOPLATIN
     Indication: TARGETED CANCER THERAPY
     Route: 041
     Dates: start: 20180831, end: 20180831
  6. HERCEPTIN [Suspect]
     Active Substance: TRASTUZUMAB
     Indication: BREAST CANCER RECURRENT
     Dosage: POWDER INJECTION
     Route: 041
     Dates: start: 20181002, end: 20181002
  7. GLUCOSE [Concomitant]
     Active Substance: DEXTROSE
     Route: 041
     Dates: start: 20180831, end: 20180831
  8. HERCEPTIN [Suspect]
     Active Substance: TRASTUZUMAB
     Indication: TARGETED CANCER THERAPY
     Dosage: POWDER INJECTION
     Route: 041
     Dates: start: 20180903, end: 20180903
  9. SODIUM CHLORIDE. [Concomitant]
     Active Substance: SODIUM CHLORIDE
     Dosage: SOLVENT FOR CEFTRIAXONE
     Route: 041
     Dates: start: 20180903, end: 20180903
  10. SODIUM CHLORIDE. [Concomitant]
     Active Substance: SODIUM CHLORIDE
     Dosage: SOLVENT FOR TRASTUZUMAB(N7291//SH0192)
     Route: 041
     Dates: start: 20190617, end: 20190617

REACTIONS (3)
  - Platelet count decreased [Unknown]
  - White blood cell count decreased [Recovering/Resolving]
  - Bone marrow failure [Recovering/Resolving]

NARRATIVE: CASE EVENT DATE: 20180906
